FAERS Safety Report 4844157-7 (Version None)
Quarter: 2005Q4

REPORT INFORMATION
  Report Type: 
  Country: None (occurrence: None)
  Receive Date: 20051202
  Receipt Date: 20050126
  Transmission Date: 20060501
  Serious: Yes (Death)
  Sender: FDA-Public Use
  Company Number: FR-BRISTOL-MYERS SQUIBB COMPANY-12871752

PATIENT
  Age: 75 Year
  Sex: Male
  Weight: 87 kg

DRUGS (7)
  1. APROVEL TABS 75 MG [Suspect]
     Indication: HYPERTENSION
     Route: 048
     Dates: start: 20020210, end: 20050609
  2. ELISOR TABS 20 MG [Suspect]
     Indication: HYPERCHOLESTEROLAEMIA
     Route: 048
     Dates: start: 20000418, end: 20050318
  3. DETENSIEL [Concomitant]
     Dates: start: 19990101
  4. SINTROM [Concomitant]
     Dates: start: 19990101
  5. DIFFU-K [Concomitant]
     Dates: start: 19990101
  6. DAFALGAN [Concomitant]
     Dates: start: 19990101
  7. DIAFUSOR [Concomitant]
     Dates: start: 19990101

REACTIONS (3)
  - BREAST PAIN [None]
  - GYNAECOMASTIA [None]
  - MYOCARDIAL INFARCTION [None]
